FAERS Safety Report 14098905 (Version 1)
Quarter: 2017Q4

REPORT INFORMATION
  Report Type: Spontaneous
  Country: US (occurrence: US)
  Receive Date: 20171017
  Receipt Date: 20171017
  Transmission Date: 20180321
  Serious: Yes (Other)
  Sender: FDA-Public Use
  Company Number: US-GLAXOSMITHKLINE-US2017GSK159343

PATIENT
  Age: 9 Year
  Sex: Female

DRUGS (3)
  1. FLUTICASONE. [Suspect]
     Active Substance: FLUTICASONE
     Route: 055
  2. FLUCONAZOLE. [Interacting]
     Active Substance: FLUCONAZOLE
     Indication: ANTIFUNGAL TREATMENT
  3. POSACONAZOLE [Suspect]
     Active Substance: POSACONAZOLE
     Indication: ANTIFUNGAL TREATMENT
     Dosage: UNK

REACTIONS (8)
  - Fatigue [Unknown]
  - Growth failure [Unknown]
  - Bone density decreased [Unknown]
  - Drug interaction [Unknown]
  - Alopecia [Unknown]
  - Adrenal insufficiency [Recovered/Resolved]
  - Femur fracture [Unknown]
  - Cushingoid [Unknown]
